FAERS Safety Report 8392306-9 (Version None)
Quarter: 2012Q2

REPORT INFORMATION
  Report Type: 
  Country: None (occurrence: None)
  Receive Date: 20120529
  Receipt Date: 20120525
  Transmission Date: 20120825
  Serious: Yes (Death, Life-Threatening, Hospitalization)
  Sender: FDA-Public Use
  Company Number: US-ASTRAZENECA-2011SE52255

PATIENT
  Age: 64 Year
  Sex: Female

DRUGS (6)
  1. ZOFRAN [Concomitant]
  2. CRESTOR [Suspect]
     Route: 048
     Dates: start: 20110101
  3. URACIL MUSTARD [Concomitant]
  4. CRESTOR [Suspect]
     Route: 048
     Dates: start: 20080710
  5. PROPRANOLOL [Concomitant]
  6. ZENTIL [Concomitant]

REACTIONS (10)
  - GALLBLADDER DISORDER [None]
  - ABDOMINAL DISCOMFORT [None]
  - DECREASED APPETITE [None]
  - HEPATIC FAILURE [None]
  - RENAL FAILURE [None]
  - SKIN ODOUR ABNORMAL [None]
  - LOSS OF CONSCIOUSNESS [None]
  - THYROTOXIC CRISIS [None]
  - PNEUMONIA [None]
  - THYROID FUNCTION TEST ABNORMAL [None]
